FAERS Safety Report 17095199 (Version 1)
Quarter: 2019Q4

REPORT INFORMATION
  Report Type: Spontaneous
  Country: GB (occurrence: GB)
  Receive Date: 20191130
  Receipt Date: 20191130
  Transmission Date: 20200122
  Serious: Yes (Other)
  Sender: FDA-Public Use
  Company Number: GB-TEVA-2019-GB-1143324

PATIENT
  Age: 18 Year
  Sex: Male

DRUGS (1)
  1. NITROFURANTOIN. [Suspect]
     Active Substance: NITROFURANTOIN
     Indication: URINARY TRACT INFECTION
     Dosage: 100 MG
     Route: 048

REACTIONS (2)
  - Vasculitic rash [Not Recovered/Not Resolved]
  - Petechiae [Not Recovered/Not Resolved]

NARRATIVE: CASE EVENT DATE: 20191007
